FAERS Safety Report 16174386 (Version 2)
Quarter: 2019Q2

REPORT INFORMATION
  Report Type: Spontaneous
  Country: JP (occurrence: JP)
  Receive Date: 20190409
  Receipt Date: 20190523
  Transmission Date: 20190711
  Serious: Yes (Death, Life-Threatening, Hospitalization, Other)
  Sender: FDA-Public Use
  Company Number: JP-KYOWAKIRIN-2018CKK009634AA

PATIENT

DRUGS (33)
  1. MAGNESIUM SULFATE. [Concomitant]
     Active Substance: MAGNESIUM SULFATE
     Indication: CONSTIPATION
     Dosage: 330 MG, TID, AFTER EACH MEAL
     Route: 048
     Dates: start: 20170209, end: 20170320
  2. VALIXA [Concomitant]
     Active Substance: VALGANCICLOVIR
     Indication: CYTOMEGALOVIRUS VIRAEMIA
     Dosage: 450 MG, QD, AFTER DINNER
     Route: 048
     Dates: start: 20170415, end: 20170423
  3. BAKTAR [Suspect]
     Active Substance: SULFAMETHOXAZOLE\TRIMETHOPRIM
     Indication: ANTIFUNGAL PROPHYLAXIS
     Dosage: 1 DF, QD, AFTER BREAKFAST
     Route: 048
     Dates: start: 20170114, end: 20170320
  4. REVLIMID [Suspect]
     Active Substance: LENALIDOMIDE
     Dosage: 15-25 MG, BEFORE GOING TO BED
     Route: 048
     Dates: start: 20170501, end: 20170506
  5. TRAMCET [Concomitant]
     Active Substance: ACETAMINOPHEN\TRAMADOL
     Indication: BACK PAIN
  6. FLUCONAZOLE. [Concomitant]
     Active Substance: FLUCONAZOLE
     Indication: CYTOMEGALOVIRUS VIRAEMIA
     Dosage: 200 MG, QD, AFTER BREAKFAST
     Route: 048
     Dates: start: 20170127, end: 20170527
  7. LIXIANA [Concomitant]
     Active Substance: EDOXABAN TOSYLATE
     Dosage: 30 MG, QD, AFTER DINNER
     Route: 048
     Dates: start: 20170501, end: 20170506
  8. SULBACSIN [Concomitant]
     Active Substance: AMPICILLIN SODIUM\SULBACTAM SODIUM
     Indication: CYSTITIS
     Dosage: 3 G, BID
     Route: 065
     Dates: start: 20170502, end: 20170506
  9. GASTER [FAMOTIDINE] [Concomitant]
     Indication: GASTRITIS PROPHYLAXIS
     Dosage: UNK UNK, BID
     Route: 065
     Dates: start: 20170320, end: 20170405
  10. EDOXABAN [Concomitant]
     Active Substance: EDOXABAN TOSYLATE
     Dosage: UNK
     Route: 048
  11. GRACEVIT [Concomitant]
     Active Substance: SITAFLOXACIN
     Indication: INFECTION PROPHYLAXIS
     Dosage: 100 MG, QD, AFTER BREAKFAST
     Route: 048
     Dates: start: 20170127, end: 20170320
  12. FUROSEMIDE. [Concomitant]
     Active Substance: FUROSEMIDE
     Indication: WEIGHT INCREASED
     Dosage: 20 MG, QD, AFTER BREAKFAST
     Route: 048
     Dates: start: 20170414, end: 20170423
  13. ALDACTONE A [Concomitant]
     Active Substance: SPIRONOLACTONE
     Indication: WEIGHT INCREASED
     Dosage: 25 MG, QD, AFTER BREAKFAST
     Route: 048
     Dates: start: 20170414, end: 20170423
  14. TAKECAB [Concomitant]
     Active Substance: VONOPRAZAN FUMURATE
     Indication: GASTRITIS PROPHYLAXIS
     Dosage: 10 MG, QD, AFTER DINNER
     Route: 048
     Dates: start: 20170410, end: 20170424
  15. NOVAMIN [PROCHLORPERAZINE MALEATE] [Concomitant]
     Indication: VOMITING
  16. SOLU-CORTEF [Concomitant]
     Active Substance: HYDROCORTISONE SODIUM SUCCINATE
     Indication: DRUG ERUPTION
     Dosage: 100 MG, QD
     Route: 065
     Dates: start: 20170306, end: 20170306
  17. NEXIUM [Suspect]
     Active Substance: ESOMEPRAZOLE MAGNESIUM
     Indication: GASTRITIS PROPHYLAXIS
     Dosage: 20 MG, QD, AFTER BREAKFAST
     Route: 048
     Dates: start: 20170110, end: 20170320
  18. FEBURIC [Concomitant]
     Active Substance: FEBUXOSTAT
     Indication: HYPERURICAEMIA
     Dosage: 60 MG, QD, AFTER BREAKFAST
     Route: 048
     Dates: start: 20170110, end: 20170320
  19. FUROSEMIDE. [Concomitant]
     Active Substance: FUROSEMIDE
     Indication: CYSTITIS
     Dosage: 20 MG, QD, AFTER BREAKFAST
     Route: 048
     Dates: start: 20170428, end: 20170511
  20. NOVAMIN [PROCHLORPERAZINE MALEATE] [Concomitant]
     Indication: NAUSEA
     Dosage: 5 MG, TID, AFTER EACH MEAL
     Route: 048
     Dates: start: 20170420, end: 20170423
  21. PREDONINE [Concomitant]
     Active Substance: PREDNISOLONE
     Indication: DRUG ERUPTION
     Dosage: 10-20 MG, QD, AFTER BREAKFAST
     Route: 065
     Dates: start: 20170307, end: 20170527
  22. NEXIUM [Suspect]
     Active Substance: ESOMEPRAZOLE MAGNESIUM
     Dosage: 20 MG, QD, AFTER BREAKFAST
     Route: 048
     Dates: start: 20170405, end: 20170410
  23. REVLIMID [Suspect]
     Active Substance: LENALIDOMIDE
     Indication: ADULT T-CELL LYMPHOMA/LEUKAEMIA REFRACTORY
     Dosage: 15-25 MG, BEFORE GOING TO BED
     Route: 048
     Dates: start: 20170413, end: 20170421
  24. ZOVIRAX ACTIVE [Concomitant]
     Indication: INFECTION PROPHYLAXIS
     Dosage: 200 MG, QD, AFTER BREAKFAST
     Route: 048
     Dates: start: 20170309, end: 20170415
  25. FOSCAVIR [Concomitant]
     Active Substance: FOSCARNET SODIUM
     Indication: CYTOMEGALOVIRUS VIRAEMIA
     Dosage: 4000 MG, QD
     Route: 065
     Dates: start: 20170424, end: 20170502
  26. SOLU-CORTEF [Concomitant]
     Active Substance: HYDROCORTISONE SODIUM SUCCINATE
     Dosage: 100 MG, QD
     Route: 065
     Dates: start: 20170407, end: 20170407
  27. LIXIANA [Concomitant]
     Active Substance: EDOXABAN TOSYLATE
     Indication: THROMBOSIS PROPHYLAXIS
     Dosage: 30 MG, QD, AFTER DINNER
     Route: 048
     Dates: start: 20170414, end: 20170423
  28. SAMTIREL [Concomitant]
     Active Substance: ATOVAQUONE
     Indication: ANTIFUNGAL PROPHYLAXIS
     Dosage: 750 MG, QD, AFTER LUNCH
     Route: 048
     Dates: start: 20170410, end: 20170423
  29. TRAMCET [Concomitant]
     Active Substance: ACETAMINOPHEN\TRAMADOL
     Indication: ABDOMINAL PAIN
     Dosage: 1 DF, TID, AFTER EACH MEAL
     Route: 048
     Dates: start: 20170420, end: 20170423
  30. POTELIGEO [Suspect]
     Active Substance: MOGAMULIZUMAB-KPKC
     Indication: ADULT T-CELL LYMPHOMA/LEUKAEMIA REFRACTORY
     Dosage: 50 MG, 1X/WEEK
     Route: 041
     Dates: start: 20170214, end: 20170228
  31. BAKTAR [Suspect]
     Active Substance: SULFAMETHOXAZOLE\TRIMETHOPRIM
     Dosage: 1 DF, QD, AFTER BREAKFAST
     Route: 048
     Dates: start: 20170405, end: 20170410
  32. URSO [Concomitant]
     Active Substance: URSODIOL
     Indication: LIVER DISORDER
     Dosage: 200 MG, TID, AFTER EACH MEAL
     Route: 048
     Dates: start: 20170124, end: 20170320
  33. SENNOSIDE                          /00571901/ [Concomitant]
     Active Substance: SENNOSIDES A AND B
     Indication: CONSTIPATION
     Dosage: 24 MG, QD, BEFORE BEDTIME
     Route: 048
     Dates: start: 20170114, end: 20170320

REACTIONS (8)
  - Drug eruption [Recovered/Resolved]
  - Disseminated intravascular coagulation [Fatal]
  - Tumour invasion [Fatal]
  - Drug eruption [Recovered/Resolved]
  - Drug eruption [Not Recovered/Not Resolved]
  - Cystitis [Not Recovered/Not Resolved]
  - Cytomegalovirus viraemia [Not Recovered/Not Resolved]
  - Weight increased [Unknown]

NARRATIVE: CASE EVENT DATE: 20170306
